FAERS Safety Report 4551266-9 (Version None)
Quarter: 2005Q1

REPORT INFORMATION
  Report Type: 
  Country: None (occurrence: None)
  Receive Date: 20050106
  Receipt Date: 20041221
  Transmission Date: 20050727
  Serious: Yes (Life-Threatening)
  Sender: FDA-Public Use
  Company Number: PHNU2004DE04272

PATIENT
  Age: 72 Year
  Sex: Male

DRUGS (3)
  1. VISUDYNE [Suspect]
     Indication: MACULAR DEGENERATION
     Dates: start: 20041123, end: 20041123
  2. FLUORESCEIN [Concomitant]
  3. TRIAMCINOLONE [Suspect]
     Dates: start: 20041125, end: 20041125

REACTIONS (4)
  - EYE EXCISION [None]
  - METAMORPHOPSIA [None]
  - PANOPHTHALMITIS [None]
  - SUBRETINAL FIBROSIS [None]
